FAERS Safety Report 6321574-X (Version None)
Quarter: 2009Q3

REPORT INFORMATION
  Report Type: 
  Country: None (occurrence: None)
  Receive Date: 20090819
  Receipt Date: 20090810
  Transmission Date: 20100115
  Serious: Yes (Hospitalization)
  Sender: FDA-Public Use
  Company Number: GXKR2009GB09003

PATIENT
  Age: 68 Year
  Sex: Female

DRUGS (2)
  1. CODEINE PHOSPHATE          (CODEINE PHOSPHATE) UNKNOWN [Suspect]
     Dosage: 76 MG, IN THE FIRST 36 HRS AFTER SURGERY
  2. MORPHINE SULFATE [Suspect]
     Dosage: 50 MG, IN THE FIRST 36 HRS AFTER SURGERY

REACTIONS (6)
  - HYPERKALAEMIA [None]
  - MIOSIS [None]
  - RENAL FAILURE ACUTE [None]
  - RESPIRATORY RATE DECREASED [None]
  - SOMNOLENCE [None]
  - THERAPEUTIC AGENT TOXICITY [None]
